FAERS Safety Report 13411034 (Version 3)
Quarter: 2019Q4

REPORT INFORMATION
  Report Type: Spontaneous
  Country: US (occurrence: US)
  Receive Date: 20170406
  Receipt Date: 20191202
  Transmission Date: 20200122
  Serious: No
  Sender: FDA-Public Use
  Company Number: US-JNJFOC-20170304660

PATIENT
  Sex: Male

DRUGS (8)
  1. RISPERDAL [Suspect]
     Active Substance: RISPERIDONE
     Dosage: VARYING DOSES 0.25, 0.5, 01 MG AND FREQUENCY
     Route: 048
     Dates: start: 20100224
  2. RISPERDAL [Suspect]
     Active Substance: RISPERIDONE
     Indication: ATTENTION DEFICIT/HYPERACTIVITY DISORDER
     Dosage: VARYING DOSES 0.25, 0.5, 01 MG AND FREQUENCY
     Route: 048
     Dates: start: 20090619, end: 20090825
  3. RISPERIDONE. [Suspect]
     Active Substance: RISPERIDONE
     Indication: AGGRESSION
     Dosage: IN VARYING FREQUENCIES, DOSES OF 0.25, 0.5, 01 MG
     Route: 048
     Dates: start: 20090629, end: 20121012
  4. RISPERDAL [Suspect]
     Active Substance: RISPERIDONE
     Route: 048
     Dates: start: 20111107, end: 20120118
  5. RISPERDAL [Suspect]
     Active Substance: RISPERIDONE
     Indication: AGGRESSION
     Dosage: VARYING DOSES 0.25, 0.5, 01 MG AND FREQUENCY
     Route: 048
     Dates: start: 20080218, end: 20080630
  6. RISPERDAL [Suspect]
     Active Substance: RISPERIDONE
     Route: 048
     Dates: end: 20121113
  7. RISPERDAL [Suspect]
     Active Substance: RISPERIDONE
     Route: 048
     Dates: start: 20100824, end: 20100901
  8. RISPERIDONE. [Suspect]
     Active Substance: RISPERIDONE
     Indication: ATTENTION DEFICIT/HYPERACTIVITY DISORDER

REACTIONS (2)
  - Emotional distress [Unknown]
  - Gynaecomastia [Unknown]
